FAERS Safety Report 12908639 (Version 1)
Quarter: 2016Q4

REPORT INFORMATION
  Report Type: Spontaneous
  Country: GB (occurrence: GB)
  Receive Date: 20161103
  Receipt Date: 20161103
  Transmission Date: 20170207
  Serious: Yes (Life-Threatening)
  Sender: FDA-Public Use
  Company Number: ALCN2016GB007415

PATIENT
  Age: 84 Year
  Sex: Female

DRUGS (1)
  1. FLUORESCEIN SODIUM. [Suspect]
     Active Substance: FLUORESCEIN SODIUM
     Indication: PRODUCT USED FOR UNKNOWN INDICATION
     Dosage: 2 ML, ONCE/SINGLE
     Route: 042
     Dates: start: 20160705, end: 20160705

REACTIONS (5)
  - Skin discolouration [Recovered/Resolved]
  - Throat irritation [Recovered/Resolved]
  - Chills [Recovered/Resolved]
  - Body temperature decreased [Recovered/Resolved]
  - Dysphonia [Recovered/Resolved]

NARRATIVE: CASE EVENT DATE: 20160705
